FAERS Safety Report 12870363 (Version 1)
Quarter: 2016Q4

REPORT INFORMATION
  Report Type: Spontaneous
  Country: RU (occurrence: RU)
  Receive Date: 20161021
  Receipt Date: 20161021
  Transmission Date: 20170207
  Serious: Yes (Other)
  Sender: FDA-Public Use
  Company Number: RU-ABBVIE-16P-251-1759180-00

PATIENT
  Age: 5 Year
  Sex: Female
  Weight: 22 kg

DRUGS (4)
  1. SEVOFLURANE. [Suspect]
     Active Substance: SEVOFLURANE
     Dosage: 3.5 VOL. % ON THE 8TH MINUTE OF ANESTESIA
     Route: 055
     Dates: start: 20160927, end: 20160927
  2. ANALGIN [Concomitant]
     Active Substance: METAMIZOLE SODIUM
     Indication: ANAESTHESIA
     Route: 042
     Dates: start: 20160927, end: 20160927
  3. SEVOFLURANE. [Suspect]
     Active Substance: SEVOFLURANE
     Dosage: 5 VOL. %
     Route: 055
     Dates: start: 20160927, end: 20160927
  4. SEVOFLURANE. [Suspect]
     Active Substance: SEVOFLURANE
     Indication: GENERAL ANAESTHESIA
     Dosage: 8.0 VOL. %
     Route: 055
     Dates: start: 20160927, end: 20160927

REACTIONS (4)
  - Laryngospasm [Recovered/Resolved]
  - Bronchospasm [Recovered/Resolved]
  - Drug ineffective [Recovered/Resolved]
  - Post procedural complication [Recovered/Resolved]

NARRATIVE: CASE EVENT DATE: 20160927
